FAERS Safety Report 13994641 (Version 1)
Quarter: 2017Q3

REPORT INFORMATION
  Report Type: Spontaneous
  Country: GB (occurrence: GB)
  Receive Date: 20170921
  Receipt Date: 20170921
  Transmission Date: 20171128
  Serious: Yes (Other)
  Sender: FDA-Public Use
  Company Number: GB-ASTRAZENECA-2017SE94056

PATIENT
  Age: 55 Year
  Sex: Female
  Weight: 80 kg

DRUGS (1)
  1. ESOMEPRAZOLE SODIUM. [Suspect]
     Active Substance: ESOMEPRAZOLE SODIUM
     Indication: DYSPEPSIA
     Dosage: 20MG
     Route: 042
     Dates: start: 2006, end: 2017

REACTIONS (2)
  - Osteoporosis [Not Recovered/Not Resolved]
  - Spinal fracture [Unknown]

NARRATIVE: CASE EVENT DATE: 20170806
